FAERS Safety Report 8249398-7 (Version None)
Quarter: 2012Q2

REPORT INFORMATION
  Report Type: 
  Country: None (occurrence: None)
  Receive Date: 20120402
  Receipt Date: 20120326
  Transmission Date: 20120825
  Serious: Yes (Hospitalization)
  Sender: FDA-Public Use
  Company Number: IE-JNJFOC-20120301283

PATIENT
  Sex: Male

DRUGS (8)
  1. NEBIVOLOL HCL [Concomitant]
  2. DELTACORTRIL [Concomitant]
  3. METHOTREXATE [Concomitant]
  4. SIMPONI [Suspect]
     Indication: RHEUMATOID ARTHRITIS
     Route: 058
     Dates: start: 20101203
  5. PANTOPRAZOLE [Concomitant]
  6. ISTIN [Concomitant]
  7. FOLIC ACID [Concomitant]
  8. DIFENAC [Concomitant]

REACTIONS (1)
  - LUNG INFECTION [None]
